FAERS Safety Report 6675411-4 (Version None)
Quarter: 2010Q2

REPORT INFORMATION
  Report Type: 
  Country: None (occurrence: None)
  Receive Date: 20100409
  Receipt Date: 20100329
  Transmission Date: 20101027
  Serious: Yes (Death)
  Sender: FDA-Public Use
  Company Number: DE-CUBIST-2009S1000581

PATIENT
  Age: 60 Year
  Sex: Male
  Weight: 40 kg

DRUGS (2)
  1. CUBICIN [Suspect]
     Indication: INFECTION
     Route: 042
  2. CUBICIN [Suspect]
     Indication: SEPSIS
     Route: 042

REACTIONS (3)
  - ACUTE MYELOID LEUKAEMIA [None]
  - MALIGNANT NEOPLASM PROGRESSION [None]
  - MULTI-ORGAN FAILURE [None]
